FAERS Safety Report 17162295 (Version 1)
Quarter: 2019Q4

REPORT INFORMATION
  Report Type: Report from Study
  Country: US (occurrence: US)
  Receive Date: 20191217
  Receipt Date: 20191217
  Transmission Date: 20200122
  Serious: Yes (Other)
  Sender: FDA-Public Use
  Company Number: US-BRISTOL-MYERS SQUIBB COMPANY-BMS-2019-117862

PATIENT
  Sex: Female
  Weight: 122.45 kg

DRUGS (3)
  1. IBUPROFEN. [Concomitant]
     Active Substance: IBUPROFEN
     Indication: PRODUCT USED FOR UNKNOWN INDICATION
     Route: 065
  2. LISINOPRIL. [Concomitant]
     Active Substance: LISINOPRIL
     Indication: HYPERTENSION
     Route: 065
  3. ABATACEPT [Suspect]
     Active Substance: ABATACEPT
     Indication: RHEUMATOID ARTHRITIS
     Dosage: 125 MILLIGRAM, QWK
     Route: 065
     Dates: start: 201803

REACTIONS (8)
  - Rheumatoid arthritis [Unknown]
  - Injection site haemorrhage [Unknown]
  - Muscle rigidity [Unknown]
  - Drug ineffective [Unknown]
  - Rash [Recovered/Resolved]
  - Limb discomfort [Unknown]
  - Peripheral swelling [Unknown]
  - Injection site erythema [Unknown]
